FAERS Safety Report 14633840 (Version 1)
Quarter: 2018Q1

REPORT INFORMATION
  Report Type: Spontaneous
  Country: FR (occurrence: FR)
  Receive Date: 20180314
  Receipt Date: 20180314
  Transmission Date: 20180509
  Serious: Yes (Death)
  Sender: FDA-Public Use
  Company Number: FR-CIPLA LTD.-2018FR10994

PATIENT

DRUGS (3)
  1. IRINOTECAN [Suspect]
     Active Substance: IRINOTECAN
     Indication: PANCREATIC CARCINOMA METASTATIC
     Dosage: 300 MG, CYCLICAL
     Route: 041
     Dates: start: 20170706
  2. OXALIPLATIN. [Suspect]
     Active Substance: OXALIPLATIN
     Indication: PANCREATIC CARCINOMA METASTATIC
     Dosage: 140 MG, CYCLICAL
     Route: 041
     Dates: start: 20170706
  3. FLUOROURACILE ACCORD [Suspect]
     Active Substance: FLUOROURACIL
     Indication: PANCREATIC CARCINOMA METASTATIC
     Dosage: 3200 MG, CYCLICAL
     Route: 041
     Dates: start: 20170706

REACTIONS (6)
  - Vomiting [Fatal]
  - Coma [Fatal]
  - Dehydration [Fatal]
  - Hepatic failure [Fatal]
  - Hypotension [Fatal]
  - Hypoglycaemia [Fatal]

NARRATIVE: CASE EVENT DATE: 201707
